FAERS Safety Report 7782610-7 (Version None)
Quarter: 2011Q3

REPORT INFORMATION
  Report Type: 
  Country: None (occurrence: None)
  Receive Date: 20110928
  Receipt Date: 20110916
  Transmission Date: 20111222
  Serious: Yes (Death, Other)
  Sender: FDA-Public Use
  Company Number: JP-JNJFOC-20110905173

PATIENT
  Age: 72 Year
  Sex: Male

DRUGS (9)
  1. REMICADE [Suspect]
     Indication: COLITIS ULCERATIVE
     Route: 042
     Dates: start: 20110811
  2. PREDNISOLONE [Suspect]
     Indication: PRODUCT USED FOR UNKNOWN INDICATION
     Route: 048
     Dates: start: 20110629, end: 20110705
  3. PREDNISOLONE [Suspect]
     Route: 048
     Dates: start: 20110811, end: 20110826
  4. PREDNISOLONE [Suspect]
     Route: 048
     Dates: start: 20110706, end: 20110712
  5. REMICADE [Suspect]
     Route: 042
     Dates: start: 20110630
  6. MESALAMINE [Suspect]
     Indication: PRODUCT USED FOR UNKNOWN INDICATION
     Route: 048
     Dates: end: 20110826
  7. PREDNISOLONE [Suspect]
     Route: 048
     Dates: start: 20110713, end: 20110719
  8. PREDNISOLONE [Suspect]
     Route: 048
     Dates: start: 20110720, end: 20110810
  9. PREDNISOLONE [Suspect]
     Route: 048
     Dates: start: 20110615, end: 20110628

REACTIONS (4)
  - PO2 DECREASED [None]
  - CHEST X-RAY ABNORMAL [None]
  - PYREXIA [None]
  - PNEUMONIA FUNGAL [None]
